FAERS Safety Report 4741648-4 (Version None)
Quarter: 2005Q3

REPORT INFORMATION
  Report Type: 
  Country: None (occurrence: None)
  Receive Date: 20050808
  Receipt Date: 20050802
  Transmission Date: 20060218
  Serious: Yes (Hospitalization)
  Sender: FDA-Public Use
  Company Number: 200512196GDS

PATIENT
  Age: 69 Year
  Sex: Female

DRUGS (7)
  1. AVELOX [Suspect]
     Indication: DIARRHOEA
     Dosage: 400 MG, QD, ORAL
     Route: 048
     Dates: start: 20050716
  2. AVELOX [Suspect]
     Indication: PYREXIA
     Dosage: 400 MG, QD, ORAL
     Route: 048
     Dates: start: 20050716
  3. AVELOX [Suspect]
     Indication: DIARRHOEA
     Dosage: 400 MG, QD, INTRAVENOUS
     Route: 042
     Dates: start: 20050717, end: 20050718
  4. AVELOX [Suspect]
     Indication: PYREXIA
     Dosage: 400 MG, QD, INTRAVENOUS
     Route: 042
     Dates: start: 20050717, end: 20050718
  5. PLENDIL [Concomitant]
  6. LIPITOR [Concomitant]
  7. FORTUM [Concomitant]

REACTIONS (3)
  - CLONUS [None]
  - MYOCLONUS [None]
  - SEPSIS [None]
